FAERS Safety Report 25753257 (Version 1)
Quarter: 2025Q3

REPORT INFORMATION
  Report Type: Spontaneous
  Country: US (occurrence: US)
  Receive Date: 20250903
  Receipt Date: 20250903
  Transmission Date: 20251021
  Serious: No
  Sender: BIONPHARMA INC.
  Company Number: US-Bion-015228

PATIENT

DRUGS (1)
  1. PROGESTERONE [Suspect]
     Active Substance: PROGESTERONE
     Indication: Product used for unknown indication
     Route: 048

REACTIONS (2)
  - Rash [Recovered/Resolved]
  - Reaction to excipient [Recovered/Resolved]
